FAERS Safety Report 7859319 (Version 2)
Quarter: 2013Q2

REPORT INFORMATION
  Report Type: Spontaneous
  Country: US (occurrence: US)
  Receive Date: 20110317
  Receipt Date: 20130423
  Transmission Date: 20140414
  Serious: No
  Sender: FDA-Public Use
  Company Number: US-BIOGENIDEC-2011BI009181

PATIENT
  Age: 41 Year
  Sex: Female

DRUGS (3)
  1. TYSABRI [Suspect]
     Indication: MULTIPLE SCLEROSIS
     Route: 042
     Dates: start: 20100611, end: 20111117
  2. TYSABRI [Suspect]
     Indication: MULTIPLE SCLEROSIS
     Route: 042
     Dates: start: 20120404, end: 20120503
  3. AVONEX [Concomitant]
     Indication: MULTIPLE SCLEROSIS
     Route: 030
     Dates: start: 20000201

REACTIONS (6)
  - Ear infection [Recovered/Resolved]
  - Pharyngitis streptococcal [Recovered/Resolved]
  - Pneumonia [Recovered/Resolved]
  - Oral herpes [Recovered/Resolved]
  - Malaise [Unknown]
  - Nasopharyngitis [Recovered/Resolved]
